FAERS Safety Report 4709422-2 (Version None)
Quarter: 2005Q3

REPORT INFORMATION
  Report Type: 
  Country: None (occurrence: None)
  Receive Date: 20050705
  Receipt Date: 20050622
  Transmission Date: 20060218
  Serious: Yes (Hospitalization)
  Sender: FDA-Public Use
  Company Number: 2005-06-0148

PATIENT
  Age: 76 Year
  Sex: Male

DRUGS (1)
  1. NASONEX [Suspect]
     Dosage: 2 SPR QD NASAL SPRAY
     Route: 045

REACTIONS (1)
  - PHARMACEUTICAL PRODUCT COMPLAINT [None]
